FAERS Safety Report 5646629-4 (Version None)
Quarter: 2008Q1

REPORT INFORMATION
  Report Type: 
  Country: None (occurrence: None)
  Receive Date: 20080303
  Receipt Date: 20080222
  Transmission Date: 20080703
  Serious: Yes (Other)
  Sender: FDA-Public Use
  Company Number: PHHY2008JP02335

PATIENT

DRUGS (2)
  1. LIORESAL [Suspect]
     Route: 048
  2. BUFFERIN [Concomitant]
     Route: 048

REACTIONS (1)
  - APHONIA [None]
